FAERS Safety Report 17648984 (Version 1)
Quarter: 2020Q2

REPORT INFORMATION
  Report Type: Spontaneous
  Country: GB (occurrence: GB)
  Receive Date: 20200409
  Receipt Date: 20200409
  Transmission Date: 20200713
  Serious: Yes (Death, Hospitalization)
  Sender: FDA-Public Use
  Company Number: GB-TEVA-2020-GB-1220844

PATIENT
  Age: 97 Year
  Sex: Female

DRUGS (9)
  1. POLYVINYL ALCOHOL [Concomitant]
     Active Substance: POLYVINYL ALCOHOL
     Route: 050
  2. CALCICHEW D3 [Concomitant]
     Active Substance: CALCIUM\CHOLECALCIFEROL
     Dosage: 2 DOSAGE FORMS
     Route: 048
  3. PRAVASTATIN. [Concomitant]
     Active Substance: PRAVASTATIN
     Dosage: 10 MG, NIGHT
     Route: 048
  4. BISOPROLOL [Suspect]
     Active Substance: BISOPROLOL
     Dosage: 2.5 MG, MORNING
     Route: 048
     Dates: end: 20200131
  5. FUROSEMIDE. [Suspect]
     Active Substance: FUROSEMIDE
     Dosage: 40 MG, MORNING
     Route: 048
     Dates: end: 20200131
  6. CANDESARTAN. [Suspect]
     Active Substance: CANDESARTAN
     Dosage: 4 MG
     Route: 048
     Dates: end: 20200131
  7. WARFARIN [Suspect]
     Active Substance: WARFARIN
     Dosage: 1MG ON ALTERNATE DAYS WITH 2MG
     Route: 048
  8. LATANOPROST. [Concomitant]
     Active Substance: LATANOPROST
     Dosage: 2 GTT DAILY; ONE DROP IN BOTH EYES AT NIGHT - 50MICROGRAMS/ML
     Route: 050
  9. OMEPRAZOLE. [Concomitant]
     Active Substance: OMEPRAZOLE
     Dosage: 20 MG,MORNING
     Route: 048

REACTIONS (5)
  - Acidosis [Fatal]
  - Hypotension [Fatal]
  - International normalised ratio increased [Fatal]
  - Acute kidney injury [Fatal]
  - Bradycardia [Fatal]

NARRATIVE: CASE EVENT DATE: 20200131
